FAERS Safety Report 13406711 (Version 1)
Quarter: 2017Q2

REPORT INFORMATION
  Report Type: Spontaneous
  Country: DE (occurrence: DE)
  Receive Date: 20170405
  Receipt Date: 20170405
  Transmission Date: 20170830
  Serious: Yes (Death, Congenital Anomaly, Other)
  Sender: FDA-Public Use
  Company Number: DE-TEVA-755884GER

PATIENT
  Age: 1 Day
  Sex: Female
  Weight: .72 kg

DRUGS (7)
  1. VALSARTAN. [Suspect]
     Active Substance: VALSARTAN
     Indication: CONGESTIVE CARDIOMYOPATHY
     Dosage: 80 MILLIGRAM DAILY;
     Route: 064
     Dates: start: 20151010, end: 20160330
  2. ASPIRIN. [Concomitant]
     Active Substance: ASPIRIN
     Indication: CONGESTIVE CARDIOMYOPATHY
     Dosage: 100 MILLIGRAM DAILY; UNKNOWN SINCE WHEN
     Route: 064
     Dates: start: 20160330, end: 20160330
  3. OMEPRAZOL [Concomitant]
     Active Substance: OMEPRAZOLE
     Indication: PRODUCT USED FOR UNKNOWN INDICATION
     Dosage: 20 MILLIGRAM DAILY;
     Route: 064
     Dates: start: 20160330, end: 20160330
  4. BETAMETHASONE. [Concomitant]
     Active Substance: BETAMETHASONE
     Indication: MATERNAL THERAPY TO ENHANCE FOETAL LUNG MATURITY
     Route: 064
     Dates: start: 20160414, end: 20160414
  5. LASIX [Concomitant]
     Active Substance: FUROSEMIDE
     Indication: CONGESTIVE CARDIOMYOPATHY
     Dosage: 40 MILLIGRAM DAILY; UNKNOWN SINCE WHEN
     Route: 064
     Dates: start: 20160330, end: 20160418
  6. KANRENOL [Concomitant]
     Active Substance: CANRENOATE POTASSIUM
     Indication: CONGESTIVE CARDIOMYOPATHY
     Dosage: 100 MILLIGRAM DAILY; UNKNOWN SINCE WHEN
     Route: 064
     Dates: start: 20160330, end: 20160330
  7. BISOPROLOL [Concomitant]
     Active Substance: BISOPROLOL
     Indication: CONGESTIVE CARDIOMYOPATHY
     Dosage: 10 MILLIGRAM DAILY;
     Route: 064
     Dates: start: 20160330, end: 20160418

REACTIONS (6)
  - Angiotensin converting enzyme inhibitor foetopathy [Fatal]
  - Persistent foetal circulation [Fatal]
  - Pulmonary hypoplasia [Fatal]
  - Death [Fatal]
  - Foetal exposure during pregnancy [Unknown]
  - Bronchopulmonary dysplasia [Fatal]

NARRATIVE: CASE EVENT DATE: 20160418
